FAERS Safety Report 5014996-0 (Version None)
Quarter: 2006Q2

REPORT INFORMATION
  Report Type: 
  Country: None (occurrence: None)
  Receive Date: 20060530
  Receipt Date: 20060428
  Transmission Date: 20061013
  Serious: Yes (Hospitalization)
  Sender: FDA-Public Use
  Company Number: 0600595US

PATIENT
  Age: 44 Year
  Sex: Female

DRUGS (3)
  1. BOTOX (BOTULINUM  TOXIN TYPE A - GENERAL) POWDER FOR INJEC [Suspect]
     Indication: MIGRAINE
     Dosage: 165 UNITS, SINGLE, INTRAMUSCULAR
     Route: 030
     Dates: start: 20060412, end: 20060412
  2. RELPAX (ELETRIPTAN HYDROBROMIDE) [Concomitant]
  3. MAXALT /01406502/ (RIZATRIPTAN BENZOATE) [Concomitant]

REACTIONS (2)
  - CONDITION AGGRAVATED [None]
  - MIGRAINE [None]
